FAERS Safety Report 8471640-8 (Version None)
Quarter: 2012Q2

REPORT INFORMATION
  Report Type: 
  Country: None (occurrence: None)
  Receive Date: 20120627
  Receipt Date: 20120615
  Transmission Date: 20120825
  Serious: Yes (Hospitalization)
  Sender: FDA-Public Use
  Company Number: NL-ROCHE-1073816

PATIENT
  Sex: Male
  Weight: 78 kg

DRUGS (17)
  1. TOLTERODINE TARTRATE [Concomitant]
     Indication: URINARY INCONTINENCE
     Route: 048
     Dates: start: 20110603
  2. DEXAMETHASONE [Concomitant]
     Indication: CONVULSION
     Route: 048
     Dates: start: 20101101
  3. ONDANSETRON (ZOFRAN) [Concomitant]
     Indication: NAUSEA
     Route: 048
     Dates: start: 20111013
  4. VALPROINSAURE [Concomitant]
     Indication: EPILEPSY
     Dosage: 1000MG/1500 MG
     Route: 048
     Dates: start: 20110311
  5. LOMUSTINE [Suspect]
     Indication: BRAIN NEOPLASM MALIGNANT
     Dosage: DATE OS LAST DOSE PRIOR TO SAE: 13/OCT/2011
     Route: 048
     Dates: start: 20110312
  6. DEPAKENE [Concomitant]
     Indication: CONVULSION
     Dosage: LAST DOSE PRIOR TO SAE /MAY/2012
     Route: 048
     Dates: start: 20100101
  7. AVASTIN [Suspect]
     Indication: BRAIN NEOPLASM MALIGNANT
     Dosage: DATE OF LAST DOSE PRIOR TO SAE: 04/MAY/2012
     Route: 042
     Dates: start: 20110311
  8. ANTAGEL [Concomitant]
     Indication: GASTRIC DISORDER
     Route: 048
     Dates: start: 20120515
  9. FENYTOIN [Concomitant]
     Indication: EPILEPSY
     Route: 048
     Dates: start: 20110311
  10. DEXAMETHASONE [Concomitant]
     Dates: start: 20110603, end: 20120501
  11. PANTOPRAZOLE [Concomitant]
     Dates: start: 20120126
  12. MIDAZOLAM [Concomitant]
     Dosage: NASAL SPRAY
     Route: 050
     Dates: start: 20111230
  13. LEVETIRACETAM [Concomitant]
     Indication: EPILEPSY
     Route: 048
     Dates: start: 20110311
  14. KEPPRA [Concomitant]
     Indication: CONVULSION
     Dosage: LAST DOSE PRIOR TO SAE /MAY/2012
     Route: 048
     Dates: start: 20110201
  15. TOLTERODINE TARTRATE [Concomitant]
     Indication: CONVULSION
     Dosage: LAST DOSE PRIOR TO SAE /MAY/2012
     Route: 048
     Dates: start: 20110301
  16. PANTOPRAZOLE [Concomitant]
     Dosage: LAST DOSE PRIOR TO SAE /MAY/2012
     Route: 048
     Dates: start: 20110509
  17. DIPHANTOINE [Concomitant]
     Indication: CONVULSION
     Dosage: LAST DOSE PRIOR TO SAE /MAY/2012
     Route: 047
     Dates: start: 20100101

REACTIONS (3)
  - JAUNDICE [None]
  - HYPERBILIRUBINAEMIA [None]
  - HEPATIC FUNCTION ABNORMAL [None]
